FAERS Safety Report 8592530-6 (Version None)
Quarter: 2012Q3

REPORT INFORMATION
  Report Type: 
  Country: None (occurrence: None)
  Receive Date: 20120814
  Receipt Date: 20120801
  Transmission Date: 20120928
  Serious: No
  Sender: FDA-Public Use
  Company Number: US-TEVA-351643USA

PATIENT
  Sex: Female
  Weight: 67.646 kg

DRUGS (3)
  1. OMEPRAZOLE [Concomitant]
     Route: 048
  2. PROAIR HFA [Suspect]
     Route: 055
     Dates: start: 20120731, end: 20120731
  3. METOPROLOL [Concomitant]
     Route: 048

REACTIONS (1)
  - BURNING SENSATION [None]
